FAERS Safety Report 4525152-4 (Version None)
Quarter: 2004Q4

REPORT INFORMATION
  Report Type: 
  Country: None (occurrence: None)
  Receive Date: 20041210
  Receipt Date: 20041206
  Transmission Date: 20050328
  Serious: Yes (Life-Threatening, Hospitalization)
  Sender: FDA-Public Use
  Company Number: HQWYE763706DEC04

PATIENT
  Age: 59 Year
  Sex: Female

DRUGS (10)
  1. ZOSYN [Suspect]
     Indication: ABDOMINAL INFECTION
     Dosage: 3.375 G 1X PER 6 HR, INTRAVENOUS
     Route: 042
     Dates: start: 20010622, end: 20010623
  2. CORDARONE [Suspect]
     Indication: ARRHYTHMIA
     Dosage: 50 MG DAILY, ORAL
     Route: 048
     Dates: end: 20010623
  3. CIPRO [Concomitant]
  4. FLAGYL [Concomitant]
  5. CALCIUM CARBONATE (CALCIUM CARBONATE) [Concomitant]
  6. ATIVAN [Concomitant]
  7. FENTANYL [Concomitant]
  8. LOPRESSOR [Concomitant]
  9. LASIX [Concomitant]
  10. SYNTHROID [Concomitant]

REACTIONS (17)
  - ANAEMIA [None]
  - ARRHYTHMIA [None]
  - ASPARTATE AMINOTRANSFERASE INCREASED [None]
  - ATRIOVENTRICULAR BLOCK FIRST DEGREE [None]
  - BLOOD LACTATE DEHYDROGENASE INCREASED [None]
  - BRADYCARDIA [None]
  - BUNDLE BRANCH BLOCK [None]
  - CARDIAC FAILURE CONGESTIVE [None]
  - CARDIOGENIC SHOCK [None]
  - CONDITION AGGRAVATED [None]
  - DYSPNOEA [None]
  - ELECTROCARDIOGRAM QT CORRECTED INTERVAL PROLONGED [None]
  - ELECTROCARDIOGRAM QT PROLONGED [None]
  - MYOCARDIAL INFARCTION [None]
  - OLIGURIA [None]
  - RENAL FAILURE [None]
  - SINUS BRADYCARDIA [None]
